FAERS Safety Report 9203166 (Version 1)
Quarter: 2013Q1

REPORT INFORMATION
  Report Type: Spontaneous
  Country: IN (occurrence: None)
  Receive Date: 20130329
  Receipt Date: 20130329
  Transmission Date: 20140127
  Serious: Yes (Death, Hospitalization, Other)
  Sender: FDA-Public Use
  Company Number: 2013P1003654

PATIENT
  Age: 41 Year
  Sex: Male

DRUGS (3)
  1. LITHIUM [Suspect]
     Indication: BIPOLAR DISORDER
  2. RISPERIDONE [Concomitant]
  3. UNSPECIFIED ANTIHYPERTENSIVE [Concomitant]

REACTIONS (12)
  - Nephropathy [None]
  - Blood creatine phosphokinase increased [None]
  - Hypotension [None]
  - Haemoglobin decreased [None]
  - Neutrophilia [None]
  - Metabolic acidosis [None]
  - Renal failure acute [None]
  - Toxicity to various agents [None]
  - General physical health deterioration [None]
  - Cerebral atrophy [None]
  - White blood cell count increased [None]
  - Culture urine positive [None]
